FAERS Safety Report 6234495-8 (Version None)
Quarter: 2009Q2

REPORT INFORMATION
  Report Type: 
  Country: None (occurrence: None)
  Receive Date: 20090618
  Receipt Date: 20080828
  Transmission Date: 20091009
  Serious: No
  Sender: FDA-Public Use
  Company Number: US-BRISTOL-MYERS SQUIBB COMPANY-14329486

PATIENT
  Age: 87 Year
  Sex: Female

DRUGS (3)
  1. CARBIDOPA + LEVODOPA [Suspect]
     Route: 048
     Dates: start: 20080601
  2. ATENOLOL [Concomitant]
  3. LISINOPRIL [Concomitant]

REACTIONS (1)
  - NAUSEA [None]
